FAERS Safety Report 8420760-2 (Version None)
Quarter: 2012Q2

REPORT INFORMATION
  Report Type: 
  Country: None (occurrence: None)
  Receive Date: 20120608
  Receipt Date: 20120604
  Transmission Date: 20120825
  Serious: No
  Sender: FDA-Public Use
  Company Number: US-PFIZER INC-2011192356

PATIENT
  Sex: Female
  Weight: 90 kg

DRUGS (8)
  1. ARTHROTEC [Suspect]
     Indication: PAIN IN EXTREMITY
  2. CALCIUM [Concomitant]
  3. VITAMIN D [Concomitant]
  4. PROTONIX [Concomitant]
     Indication: GASTROOESOPHAGEAL REFLUX DISEASE
  5. TRICOR [Concomitant]
     Indication: BLOOD TRIGLYCERIDES ABNORMAL
  6. ARTHROTEC [Suspect]
     Indication: ARTHRALGIA
     Dosage: UNK
     Route: 048
     Dates: start: 20100101, end: 20110703
  7. IBUPROFEN [Concomitant]
     Indication: ARTHRALGIA
     Dosage: UNK
  8. ZOCOR [Concomitant]
     Indication: BLOOD CHOLESTEROL INCREASED

REACTIONS (4)
  - ABDOMINAL PAIN UPPER [None]
  - DRUG HYPERSENSITIVITY [None]
  - OEDEMA PERIPHERAL [None]
  - JOINT SWELLING [None]
